FAERS Safety Report 24403686 (Version 1)
Quarter: 2024Q4

REPORT INFORMATION
  Report Type: Report from Study
  Country: ES (occurrence: ES)
  Receive Date: 20241007
  Receipt Date: 20241007
  Transmission Date: 20250115
  Serious: Yes (Death, Other)
  Sender: ROCHE
  Company Number: None

PATIENT

DRUGS (2)
  1. ATEZOLIZUMAB [Suspect]
     Active Substance: ATEZOLIZUMAB
     Indication: Hepatocellular carcinoma
     Dosage: 1200 MG EVERY THREE WEEKS
     Route: 042
     Dates: start: 202012, end: 202212
  2. BEVACIZUMAB [Suspect]
     Active Substance: BEVACIZUMAB
     Indication: Hepatocellular carcinoma
     Dosage: 15 MG/KG EVERY THREE WEEKS
     Route: 042
     Dates: start: 202012, end: 202212

REACTIONS (19)
  - Off label use [Unknown]
  - Myocarditis [Fatal]
  - Abdominal sepsis [Fatal]
  - Fatigue [Unknown]
  - Guillain-Barre syndrome [Fatal]
  - Infection [Unknown]
  - Shock haemorrhagic [Fatal]
  - Death [Fatal]
  - Infusion related reaction [Unknown]
  - Pulmonary embolism [Fatal]
  - Neurotoxicity [Unknown]
  - Impaired healing [Unknown]
  - Decreased appetite [Unknown]
  - Haemorrhage [Unknown]
  - Thyroid disorder [Unknown]
  - Hepatic failure [Unknown]
  - Hypertension [Unknown]
  - Proteinuria [Unknown]
  - Myositis [Fatal]
